FAERS Safety Report 14113383 (Version 1)
Quarter: 2017Q4

REPORT INFORMATION
  Report Type: Spontaneous
  Country: US (occurrence: US)
  Receive Date: 20171021
  Receipt Date: 20171021
  Transmission Date: 20180321
  Serious: Yes (Other)
  Sender: FDA-Public Use
  Company Number: None

PATIENT
  Age: 53 Year
  Sex: Female
  Weight: 72 kg

DRUGS (10)
  1. NORCO [Concomitant]
     Active Substance: ACETAMINOPHEN\HYDROCODONE BITARTRATE
  2. TRULICITY [Concomitant]
     Active Substance: DULAGLUTIDE
  3. JANUMET [Suspect]
     Active Substance: METFORMIN HYDROCHLORIDE\SITAGLIPTIN PHOSPHATE
     Indication: DIABETES MELLITUS
     Dosage: ?          QUANTITY:1 TABLET(S);?
     Route: 048
     Dates: start: 20170824, end: 20170831
  4. PROTONIX [Concomitant]
     Active Substance: PANTOPRAZOLE SODIUM
  5. CIPRO [Concomitant]
     Active Substance: CIPROFLOXACIN HYDROCHLORIDE
  6. LEXAPRO [Concomitant]
     Active Substance: ESCITALOPRAM OXALATE
  7. ALIVE GUMMY VITAMINS [Concomitant]
  8. CAVEDILOL [Concomitant]
     Active Substance: CARVEDILOL
  9. LISINOPRIL. [Concomitant]
     Active Substance: LISINOPRIL
  10. MODAFINIL. [Concomitant]
     Active Substance: MODAFINIL

REACTIONS (6)
  - Abdominal discomfort [None]
  - Pancreatitis [None]
  - Malaise [None]
  - Abdominal pain [None]
  - Lipase increased [None]
  - Vomiting [None]

NARRATIVE: CASE EVENT DATE: 20171013
